FAERS Safety Report 21841456 (Version 1)
Quarter: 2023Q1

REPORT INFORMATION
  Report Type: Spontaneous
  Country: US (occurrence: None)
  Receive Date: 20230109
  Receipt Date: 20230109
  Transmission Date: 20230417
  Serious: Yes (Hospitalization)
  Sender: FDA-Public Use
  Company Number: None

PATIENT
  Age: 44 Year
  Sex: Female
  Weight: 67.59 kg

DRUGS (5)
  1. IBRANCE [Suspect]
     Active Substance: PALBOCICLIB
     Indication: Breast cancer female
     Dosage: OTHER FREQUENCY : 3W ON 1W OFF;?
     Route: 048
     Dates: start: 202212, end: 20221224
  2. LETROZOLE [Concomitant]
     Active Substance: LETROZOLE
  3. ONDANSETRON [Concomitant]
     Active Substance: ONDANSETRON
  4. OXYCODONE [Concomitant]
     Active Substance: OXYCODONE
  5. VITAMIN D3 [Concomitant]
     Active Substance: CHOLECALCIFEROL

REACTIONS (1)
  - Haemoglobin decreased [None]

NARRATIVE: CASE EVENT DATE: 20221224
